FAERS Safety Report 5283891-4 (Version None)
Quarter: 2007Q2

REPORT INFORMATION
  Report Type: 
  Country: None (occurrence: None)
  Receive Date: 20070402
  Receipt Date: 20070326
  Transmission Date: 20071010
  Serious: Yes (Other)
  Sender: FDA-Public Use
  Company Number: US-MERCK-0703USA01487

PATIENT
  Sex: Male

DRUGS (2)
  1. JANUVIA [Suspect]
     Indication: DIABETES MELLITUS
     Route: 048
     Dates: start: 20061201
  2. INSULIN [Concomitant]
     Route: 065

REACTIONS (3)
  - BLOOD AMYLASE INCREASED [None]
  - LIPASE INCREASED [None]
  - PANCREATITIS [None]
